FAERS Safety Report 5248205-4 (Version None)
Quarter: 2007Q1

REPORT INFORMATION
  Report Type: 
  Country: None (occurrence: None)
  Receive Date: 20070227
  Receipt Date: 20060830
  Transmission Date: 20070707
  Serious: No
  Sender: FDA-Public Use
  Company Number: US-BRISTOL-MYERS SQUIBB COMPANY-13440508

PATIENT
  Age: 54 Year
  Sex: Female
  Weight: 99 kg

DRUGS (8)
  1. GLUCOPHAGE [Suspect]
     Indication: DIABETES MELLITUS
  2. XANAX [Concomitant]
     Indication: ANXIETY
  3. ATENOLOL [Concomitant]
  4. SYNTHROID [Concomitant]
  5. BENADRYL [Concomitant]
  6. ALBUTEROL [Concomitant]
  7. PREVACID [Concomitant]
  8. HYDROCHLOROTHIAZIDE [Concomitant]

REACTIONS (1)
  - ASTHMA [None]
